FAERS Safety Report 16783160 (Version 3)
Quarter: 2020Q4

REPORT INFORMATION
  Report Type: Report from Study
  Country: None (occurrence: CO)
  Receive Date: 20190907
  Receipt Date: 20201130
  Transmission Date: 20210113
  Serious: Yes (Other)
  Sender: FDA-Public Use
  Company Number: CO-ABBVIE-19K-036-2915228-00

PATIENT
  Age: 62 Year
  Sex: Female
  Weight: 66 kg

DRUGS (2)
  1. HUMIRA [Suspect]
     Active Substance: ADALIMUMAB
     Indication: RHEUMATOID ARTHRITIS
     Route: 058
     Dates: start: 20110224
  2. HUMIRA [Suspect]
     Active Substance: ADALIMUMAB
     Indication: RHEUMATOID ARTHRITIS
     Route: 058
     Dates: end: 20190708

REACTIONS (11)
  - Intervertebral disc degeneration [Recovering/Resolving]
  - Gait disturbance [Recovered/Resolved]
  - Spinal column injury [Recovering/Resolving]
  - Exostosis [Unknown]
  - Hypothyroidism [Recovering/Resolving]
  - Fibromyalgia [Recovering/Resolving]
  - Intervertebral disc protrusion [Recovering/Resolving]
  - Intervertebral disc protrusion [Recovering/Resolving]
  - Inflammation [Recovering/Resolving]
  - Spinal pain [Recovered/Resolved]
  - Osteochondrosis [Recovering/Resolving]

NARRATIVE: CASE EVENT DATE: 2015
